FAERS Safety Report 7244042-X (Version None)
Quarter: 2011Q1

REPORT INFORMATION
  Report Type: 
  Country: None (occurrence: None)
  Receive Date: 20110119
  Receipt Date: 20110119
  Transmission Date: 20110831
  Serious: Yes (Hospitalization)
  Sender: FDA-Public Use
  Company Number: None

PATIENT
  Sex: Female
  Weight: 89.9 kg

DRUGS (10)
  1. OXYCONTIN [Concomitant]
  2. LAPATINIB 250 MG/TABLET GSK [Suspect]
     Indication: BREAST CANCER
     Dosage: 1250 MG DAILY PO
     Route: 048
     Dates: start: 20101208, end: 20110114
  3. DHER 2 GSK [Suspect]
     Indication: BREAST CANCER
     Dosage: 500 MCG Q 2 WEEKS IM
     Route: 030
     Dates: start: 20101208, end: 20110105
  4. ONDANSERTRON HCL [Concomitant]
  5. KEPPRA [Concomitant]
  6. OXYCODONE HCL [Concomitant]
  7. EFFEXOR XR [Concomitant]
  8. PREDNISONE [Concomitant]
  9. ZOMETA [Concomitant]
  10. PROTONIX [Concomitant]

REACTIONS (3)
  - PULMONARY EMBOLISM [None]
  - MYALGIA [None]
  - PYREXIA [None]
